FAERS Safety Report 11126631 (Version 2)
Quarter: 2015Q2

REPORT INFORMATION
  Report Type: Spontaneous
  Country: BR (occurrence: BR)
  Receive Date: 20150520
  Receipt Date: 20150528
  Transmission Date: 20150821
  Serious: Yes (Hospitalization)
  Sender: FDA-Public Use
  Company Number: BR-PFIZER INC-2015166387

PATIENT
  Age: 71 Year
  Sex: Female
  Weight: 80 kg

DRUGS (4)
  1. LIPITOR [Suspect]
     Active Substance: ATORVASTATIN CALCIUM
     Dosage: 20 MG, UNK
     Route: 048
     Dates: start: 2011
  2. LOSARTAN [Concomitant]
     Active Substance: LOSARTAN
     Indication: HYPERTENSION
     Dosage: 1 TABLET, DAILY
     Dates: start: 2012
  3. AMIODARONE [Concomitant]
     Active Substance: AMIODARONE
     Indication: ARRHYTHMIA
     Dosage: 1 TABLET, DAILY
     Dates: start: 2012
  4. FUROSEMIDE. [Concomitant]
     Active Substance: FUROSEMIDE
     Indication: THYROID DISORDER
     Dosage: 1 TABLET, DAILY
     Dates: start: 2013

REACTIONS (1)
  - International normalised ratio abnormal [Unknown]

NARRATIVE: CASE EVENT DATE: 201410
